FAERS Safety Report 5789034-2 (Version None)
Quarter: 2008Q2

REPORT INFORMATION
  Report Type: 
  Country: None (occurrence: None)
  Receive Date: 20080626
  Receipt Date: 20080619
  Transmission Date: 20081010
  Serious: Yes (Hospitalization)
  Sender: FDA-Public Use
  Company Number: B0361289A

PATIENT
  Sex: Female

DRUGS (3)
  1. PAROXETINE HCL [Suspect]
     Indication: BULIMIA NERVOSA
     Route: 065
     Dates: start: 20020919, end: 20030407
  2. WARFARIN SODIUM [Concomitant]
  3. FLUOXETINE [Concomitant]
     Dates: start: 20000727

REACTIONS (10)
  - ABNORMAL BEHAVIOUR [None]
  - ALCOHOLISM [None]
  - DRUG WITHDRAWAL SYNDROME [None]
  - HYPERSOMNIA [None]
  - INTENTIONAL SELF-INJURY [None]
  - LETHARGY [None]
  - NIGHTMARE [None]
  - PARAESTHESIA [None]
  - PERSONALITY CHANGE [None]
  - SLEEP DISORDER [None]
